FAERS Safety Report 4872782-6 (Version None)
Quarter: 2006Q1

REPORT INFORMATION
  Report Type: 
  Country: None (occurrence: None)
  Receive Date: 20060103
  Receipt Date: 20051221
  Transmission Date: 20060701
  Serious: Yes (Hospitalization)
  Sender: FDA-Public Use
  Company Number: 2005172841

PATIENT
  Age: 68 Year
  Sex: Female

DRUGS (9)
  1. ZANTAC [Suspect]
     Indication: NASOPHARYNGITIS
     Dosage: ORAL
     Route: 048
     Dates: start: 20051101
  2. VALDECOXIB [Concomitant]
  3. AMLODIPINE BESYLATE [Concomitant]
  4. SERETIDE MITE (FLUTICASONE PROPIONATE, SALMETEROL XINAFOATE) [Concomitant]
  5. COMBIVENT [Concomitant]
  6. COMBIVENT [Concomitant]
  7. CALAMINE/CAMPHOR/DIPHENHYDRAMINE (CALAMINE, CAMPHOR, DIPHENHYDRAMINE) [Concomitant]
  8. GUAIFENESIN (GUAIFENESIN) [Concomitant]
  9. CLONAZEPAM [Concomitant]

REACTIONS (4)
  - CHRONIC OBSTRUCTIVE PULMONARY DISEASE [None]
  - CONDITION AGGRAVATED [None]
  - EMPHYSEMA [None]
  - GASTROENTERITIS STAPHYLOCOCCAL [None]
